FAERS Safety Report 4943415-5 (Version None)
Quarter: 2006Q1

REPORT INFORMATION
  Report Type: 
  Country: None (occurrence: None)
  Receive Date: 20060309
  Receipt Date: 20060303
  Transmission Date: 20060701
  Serious: Yes (Other)
  Sender: FDA-Public Use
  Company Number: 2006-01-0095

PATIENT
  Age: 59 Year
  Sex: Male
  Weight: 113.3993 kg

DRUGS (4)
  1. CLARITIN-D [Suspect]
     Indication: NASAL CONGESTION
     Dosage: ONE TABLET ORAL
     Route: 048
     Dates: start: 20060101, end: 20060104
  2. DIGOXIN [Suspect]
  3. FOSINOPRIL SODIUM [Concomitant]
  4. IBUPROFEN [Concomitant]

REACTIONS (2)
  - AMNESIA [None]
  - HALLUCINATION [None]
